FAERS Safety Report 9250874 (Version 1)
Quarter: 2013Q2

REPORT INFORMATION
  Report Type: Spontaneous
  Country: PH (occurrence: PH)
  Receive Date: 20130424
  Receipt Date: 20130424
  Transmission Date: 20140414
  Serious: Yes (Other)
  Sender: FDA-Public Use
  Company Number: PHHY2013PH039447

PATIENT
  Age: 47 Year
  Sex: Female

DRUGS (4)
  1. TASIGNA [Suspect]
     Indication: CHRONIC MYELOID LEUKAEMIA
     Dosage: 200 MG, BID
     Route: 048
     Dates: start: 201302
  2. TASIGNA [Suspect]
     Dosage: UNK
     Route: 048
     Dates: start: 20130325
  3. ALLOPURINOL [Suspect]
     Dosage: UNK
  4. HYDROXYUREA [Suspect]

REACTIONS (3)
  - Furuncle [Recovering/Resolving]
  - Rash [Recovered/Resolved]
  - Thrombocytopenia [Unknown]
